FAERS Safety Report 4297409-6 (Version None)
Quarter: 2004Q1

REPORT INFORMATION
  Report Type: 
  Country: None (occurrence: None)
  Receive Date: 20040217
  Receipt Date: 20040217
  Transmission Date: 20041129
  Serious: Yes (Hospitalization)
  Sender: FDA-Public Use
  Company Number: None

PATIENT
  Sex: Female
  Weight: 53.5244 kg

DRUGS (3)
  1. TRAMADOL [Suspect]
     Indication: PAIN
     Dosage: PO [PRIOR TO ADMISSIO]
     Route: 048
  2. BACLOFEN [Concomitant]
  3. OXYCONTIN [Concomitant]

REACTIONS (2)
  - FLUSHING [None]
  - PRURITUS [None]
